FAERS Safety Report 15686028 (Version 3)
Quarter: 2019Q4

REPORT INFORMATION
  Report Type: Spontaneous
  Country: US (occurrence: US)
  Receive Date: 20181204
  Receipt Date: 20191202
  Transmission Date: 20200122
  Serious: Yes (Other)
  Sender: FDA-Public Use
  Company Number: US-SA-2018SA327240

PATIENT
  Age: 47 Year
  Sex: Female
  Weight: 82.09 kg

DRUGS (2)
  1. AUBAGIO [Suspect]
     Active Substance: TERIFLUNOMIDE
     Dosage: 1 DF, STRENGTH -14 MG
     Route: 048
  2. AUBAGIO [Suspect]
     Active Substance: TERIFLUNOMIDE
     Indication: MULTIPLE SCLEROSIS
     Dosage: 7 MG, QD, STRENGTH 7 MG
     Route: 048
     Dates: start: 20180824

REACTIONS (2)
  - Alopecia [Unknown]
  - Multiple sclerosis [Unknown]
